FAERS Safety Report 6672827-7 (Version None)
Quarter: 2010Q2

REPORT INFORMATION
  Report Type: 
  Country: None (occurrence: None)
  Receive Date: 20100408
  Receipt Date: 20100324
  Transmission Date: 20101027
  Serious: No
  Sender: FDA-Public Use
  Company Number: PHHY2010US18741

PATIENT
  Sex: Female

DRUGS (2)
  1. FEMARA [Suspect]
     Dosage: 2.5 MG; UNK
     Dates: start: 20100324
  2. CHEMOTHERAPEUTICS NOS [Suspect]

REACTIONS (2)
  - DIZZINESS [None]
  - HEADACHE [None]
